FAERS Safety Report 6420553-1 (Version None)
Quarter: 2009Q4

REPORT INFORMATION
  Report Type: 
  Country: None (occurrence: None)
  Receive Date: 20091027
  Receipt Date: 20091013
  Transmission Date: 20100525
  Serious: Yes (Death)
  Sender: FDA-Public Use
  Company Number: 2009AL005336

PATIENT
  Age: 77 Year
  Sex: Female

DRUGS (1)
  1. AMLODIPINE BESYLATE [Suspect]
     Indication: HYPERTENSION
     Dosage: 5 MG
     Dates: start: 20060530

REACTIONS (12)
  - ACCIDENT [None]
  - ARTERIOSCLEROSIS CORONARY ARTERY [None]
  - BRAIN INJURY [None]
  - DRUG LEVEL ABOVE THERAPEUTIC [None]
  - EMPHYSEMA [None]
  - HYPERTENSION [None]
  - LIVER INJURY [None]
  - MULTIPLE FRACTURES [None]
  - NEPHROSCLEROSIS [None]
  - PELVIC FRACTURE [None]
  - TOXICOLOGIC TEST ABNORMAL [None]
  - TRAUMATIC LUNG INJURY [None]
